FAERS Safety Report 20691334 (Version 2)
Quarter: 2022Q2

REPORT INFORMATION
  Report Type: Spontaneous
  Country: PT (occurrence: PT)
  Receive Date: 20220408
  Receipt Date: 20220413
  Transmission Date: 20220721
  Serious: Yes (Other)
  Sender: FDA-Public Use
  Company Number: None

PATIENT
  Age: 90 Year
  Sex: Female
  Weight: 70 kg

DRUGS (1)
  1. VEKLURY [Suspect]
     Active Substance: REMDESIVIR
     Indication: COVID-19
     Dosage: 100 MG
     Route: 042
     Dates: start: 20201210, end: 20201212

REACTIONS (3)
  - Blood urea increased [Unknown]
  - Renal impairment [Unknown]
  - Blood creatinine increased [Unknown]

NARRATIVE: CASE EVENT DATE: 20201212
